FAERS Safety Report 12709692 (Version 1)
Quarter: 2016Q3

REPORT INFORMATION
  Report Type: Spontaneous
  Country: US (occurrence: None)
  Receive Date: 20160901
  Receipt Date: 20160901
  Transmission Date: 20161109
  Serious: No
  Sender: FDA-Public Use
  Company Number: None

PATIENT
  Sex: Female

DRUGS (1)
  1. NEUPOGEN [Suspect]
     Active Substance: FILGRASTIM
     Indication: ENDOMETRIAL CANCER
     Route: 058
     Dates: start: 20160623

REACTIONS (3)
  - Eye swelling [None]
  - Rash erythematous [None]
  - Hypoaesthesia [None]
